FAERS Safety Report 5332011-6 (Version None)
Quarter: 2007Q2

REPORT INFORMATION
  Report Type: 
  Country: None (occurrence: None)
  Receive Date: 20070523
  Receipt Date: 20070516
  Transmission Date: 20071010
  Serious: Yes (Other)
  Sender: FDA-Public Use
  Company Number: PHBS2007BE08204

PATIENT
  Age: 66 Year
  Sex: Female

DRUGS (3)
  1. AREDIA [Suspect]
     Indication: OSTEOPOROSIS
     Dosage: EVERY 6 MONTHS
     Dates: end: 20030101
  2. ZOMETA [Suspect]
     Indication: OSTEOPOROSIS
     Dosage: EVERY 6 MONTHS
     Dates: start: 20030101
  3. CHEMOTHERAPEUTICS NOS [Concomitant]

REACTIONS (3)
  - OSTEONECROSIS [None]
  - TOOTH EXTRACTION [None]
  - WOUND DEBRIDEMENT [None]
